FAERS Safety Report 12659599 (Version 1)
Quarter: 2016Q3

REPORT INFORMATION
  Report Type: Spontaneous
  Country: CN (occurrence: CN)
  Receive Date: 20160817
  Receipt Date: 20160817
  Transmission Date: 20161109
  Serious: Yes (Other)
  Sender: FDA-Public Use
  Company Number: CN-PFIZER INC-2016388535

PATIENT
  Age: 76 Year
  Sex: Male
  Weight: 65 kg

DRUGS (9)
  1. CELECOXIB. [Suspect]
     Active Substance: CELECOXIB
     Indication: ANALGESIC THERAPY
     Dosage: 0.2 G, 1X/DAY
     Route: 048
     Dates: start: 20160512, end: 20160527
  2. KE YUAN [Concomitant]
     Active Substance: CALCIUM DOBESILATE
     Dosage: 0.5 G, 3X/DAY
     Route: 048
     Dates: start: 20160512, end: 20160606
  3. LOSARTAN POTASSIUM. [Concomitant]
     Active Substance: LOSARTAN POTASSIUM
     Indication: HYPERTENSION
     Dosage: 50 MG, 1X/DAY
     Route: 048
     Dates: start: 20160512, end: 20160606
  4. ATORVASTATIN CALCIUM. [Concomitant]
     Active Substance: ATORVASTATIN CALCIUM
     Indication: ANGIOPATHY
     Dosage: 10 MG, 1X/DAY
     Route: 048
     Dates: start: 20160512, end: 20160526
  5. NORVASC [Concomitant]
     Active Substance: AMLODIPINE BESYLATE
     Indication: BLOOD PRESSURE MEASUREMENT
     Dosage: 5 MG, DAILY
  6. DILTIAZEM HYDROCHLORIDE SUSTAINED RELEASE CAPSULE [Suspect]
     Active Substance: DILTIAZEM HYDROCHLORIDE
     Indication: HYPERTENSION
     Dosage: 90 MG, 1X/DAY
     Dates: start: 20160512, end: 20160527
  7. BAYASPIRIN [Concomitant]
     Active Substance: ASPIRIN
     Indication: PLAQUE SHIFT
     Dosage: 100 MG, DAILY
  8. CLOPIDOGREL HYDROGEN SULFATE [Suspect]
     Active Substance: CLOPIDOGREL BISULFATE
     Indication: THROMBOSIS
     Dosage: 50 MG, 1X/DAY
     Route: 048
     Dates: start: 20160512, end: 20160527
  9. SHIHUALUO [Concomitant]
     Indication: UPPER RESPIRATORY TRACT INFECTION
     Dosage: 375 MG, 2X/DAY
     Route: 048
     Dates: start: 20160523, end: 20160527

REACTIONS (1)
  - Renal impairment [Recovering/Resolving]

NARRATIVE: CASE EVENT DATE: 20160527
